FAERS Safety Report 14774046 (Version 1)
Quarter: 2018Q2

REPORT INFORMATION
  Report Type: Spontaneous
  Country: CN (occurrence: CN)
  Receive Date: 20180418
  Receipt Date: 20180418
  Transmission Date: 20180711
  Serious: Yes (Other)
  Sender: FDA-Public Use
  Company Number: CN-009507513-1804CHN005585

PATIENT
  Sex: Male
  Weight: 1.85 kg

DRUGS (1)
  1. IMIPENEM AND CILASTATIN [Suspect]
     Active Substance: CILASTATIN SODIUM\IMIPENEM
     Indication: ANTIBIOTIC THERAPY
     Dosage: UNKNOWN

REACTIONS (2)
  - Pseudomonas infection [Unknown]
  - Drug resistance [Unknown]

NARRATIVE: CASE EVENT DATE: 2014
